FAERS Safety Report 6121896-1 (Version None)
Quarter: 2009Q1

REPORT INFORMATION
  Report Type: 
  Country: None (occurrence: None)
  Receive Date: 20090317
  Receipt Date: 20090305
  Transmission Date: 20090719
  Serious: Yes (Other)
  Sender: FDA-Public Use
  Company Number: CZ-PFIZER INC-2009181809

PATIENT

DRUGS (1)
  1. DOSTINEX [Suspect]
     Indication: HYPERPROLACTINAEMIA
     Dosage: 1.5 TABLET
     Route: 048

REACTIONS (5)
  - BLOOD PROLACTIN INCREASED [None]
  - HEADACHE [None]
  - NAUSEA [None]
  - PITUITARY TUMOUR BENIGN [None]
  - VERTIGO [None]
